FAERS Safety Report 6752314-8 (Version None)
Quarter: 2010Q2

REPORT INFORMATION
  Report Type: 
  Country: None (occurrence: None)
  Receive Date: 20100601
  Receipt Date: 20100601
  Transmission Date: 20101027
  Serious: No
  Sender: FDA-Public Use
  Company Number: None

PATIENT
  Age: 49 Year
  Sex: Male
  Weight: 77.1115 kg

DRUGS (3)
  1. FENTANYL-50 [Suspect]
     Indication: BACK PAIN
     Dosage: 1 PATCH Q48 HOURS TRANSDERMAL
     Route: 062
     Dates: start: 20100522, end: 20100528
  2. FENTANYL-50 [Suspect]
     Indication: INTERVERTEBRAL DISC DISORDER
     Dosage: 1 PATCH Q48 HOURS TRANSDERMAL
     Route: 062
     Dates: start: 20100522, end: 20100528
  3. FENTANYL-50 [Suspect]
     Indication: NERVOUS SYSTEM DISORDER
     Dosage: 1 PATCH Q48 HOURS TRANSDERMAL
     Route: 062
     Dates: start: 20100522, end: 20100528

REACTIONS (6)
  - ABASIA [None]
  - DEVICE MALFUNCTION [None]
  - DRUG INEFFECTIVE [None]
  - NO THERAPEUTIC RESPONSE [None]
  - PAIN [None]
  - PRODUCT QUALITY ISSUE [None]
